FAERS Safety Report 6643220-8 (Version None)
Quarter: 2010Q1

REPORT INFORMATION
  Report Type: 
  Country: None (occurrence: None)
  Receive Date: 20100319
  Receipt Date: 20100317
  Transmission Date: 20100710
  Serious: Yes (Other)
  Sender: FDA-Public Use
  Company Number: PHEH2010US02465

PATIENT
  Sex: Female

DRUGS (9)
  1. EXELON [Suspect]
     Dosage: 4.6 MG, UNK
     Route: 062
     Dates: start: 20090601
  2. EXELON [Suspect]
     Dosage: 9.5 MG, QD
     Route: 062
     Dates: start: 20090801
  3. WARFARIN SODIUM [Suspect]
     Dosage: 4 MG, QD
     Route: 065
  4. CARDIZEM [Concomitant]
     Dosage: 60 MG, TID
     Route: 065
  5. TRIAMTERENE AND HYDROCHLOROTHIAZID ^HARRIS^ [Concomitant]
     Dosage: 37.5/25 MG, QD
     Route: 065
  6. BONIVA [Concomitant]
     Dosage: UNK
     Route: 065
  7. ASPIRIN [Concomitant]
     Dosage: 81 MG, QD
  8. NEXIUM [Concomitant]
     Dosage: 40 MG ONCE A DAY
  9. POTASSIUM [Concomitant]
     Dosage: 6 PILLS (3 AT A TIME, TWICE A DAY)

REACTIONS (1)
  - CARBOHYDRATE ANTIGEN 125 INCREASED [None]
